FAERS Safety Report 5378957-4 (Version None)
Quarter: 2007Q3

REPORT INFORMATION
  Report Type: 
  Country: None (occurrence: None)
  Receive Date: 20070705
  Receipt Date: 20070702
  Transmission Date: 20080115
  Serious: Yes (Other)
  Sender: FDA-Public Use
  Company Number: US-ASTRAZENECA-2007UW15560

PATIENT
  Age: 81 Year
  Sex: Female
  Weight: 58.5 kg

DRUGS (4)
  1. TOPROL-XL [Suspect]
     Indication: HYPERTENSION
     Route: 048
  2. SYNTHROID [Concomitant]
  3. HYDROCHLOROTHIAZIDE [Concomitant]
  4. SPIRONOLACTONE [Concomitant]

REACTIONS (3)
  - BLOOD PRESSURE INCREASED [None]
  - HYPOAESTHESIA [None]
  - PAIN IN EXTREMITY [None]
